FAERS Safety Report 4817724-4 (Version None)
Quarter: 2005Q3

REPORT INFORMATION
  Report Type: 
  Country: None (occurrence: None)
  Receive Date: 20050929
  Receipt Date: 20050805
  Transmission Date: 20060218
  Serious: No
  Sender: FDA-Public Use
  Company Number: 05P-163-0307677-00

PATIENT
  Age: 60 Year
  Sex: Female
  Weight: 81.6475 kg

DRUGS (9)
  1. HUMIRA [Suspect]
     Indication: RHEUMATOID ARTHRITIS
     Dosage: 40 MG, 1 IN 2 WK, SUBCUTANEOUS
     Route: 058
     Dates: start: 20050501, end: 20050711
  2. METHOTREXATE [Concomitant]
  3. ZOCOR [Concomitant]
  4. LISINOPRIL [Concomitant]
  5. FENOFIBRATE [Concomitant]
  6. FOLIC ACID [Concomitant]
  7. CALCIUM CARBONATE [Concomitant]
  8. FEXOFENADINE HYDROCHLORIDE [Concomitant]
  9. GLUCOSAMINE [Concomitant]

REACTIONS (1)
  - HYPOAESTHESIA [None]
